FAERS Safety Report 25952291 (Version 1)
Quarter: 2025Q4

REPORT INFORMATION
  Report Type: Spontaneous
  Country: US (occurrence: US)
  Receive Date: 20251023
  Receipt Date: 20251023
  Transmission Date: 20260118
  Serious: No
  Sender: BRISTOL-MYERS SQUIBB COMPANY
  Company Number: US-BRISTOL-MYERS SQUIBB COMPANY-2025-144359

PATIENT
  Age: 82 Year
  Sex: Female

DRUGS (2)
  1. POMALYST [Suspect]
     Active Substance: POMALIDOMIDE
     Indication: Plasma cell myeloma
     Dosage: TAKE 1 CAPSULE BY MOUTH ON AN EMPTY STOMACH 2 HOURS AWAY FROM FOOD DAILY ON DAYS 1-21 OF A 28 DAY CYCLE
  2. POMALYST [Suspect]
     Active Substance: POMALIDOMIDE
     Dates: start: 20251021

REACTIONS (1)
  - Urinary tract infection [Recovered/Resolved]
